FAERS Safety Report 10766287 (Version 1)
Quarter: 2015Q1

REPORT INFORMATION
  Report Type: Spontaneous
  Country: US (occurrence: US)
  Receive Date: 20150205
  Receipt Date: 20150205
  Transmission Date: 20150721
  Serious: No
  Sender: FDA-Public Use
  Company Number: US-009507513-1502USA002003

PATIENT
  Age: 20 Year
  Sex: Female
  Weight: 83.9 kg

DRUGS (1)
  1. IMPLANON [Suspect]
     Active Substance: ETONOGESTREL
     Indication: CONTRACEPTION
     Dosage: 3 YEARS IMPLANT, LEFT ARM
     Route: 059
     Dates: start: 20110919

REACTIONS (6)
  - Haemorrhage [Recovered/Resolved]
  - Adverse event [Unknown]
  - Weight increased [Unknown]
  - Inappropriate schedule of drug administration [Unknown]
  - Haemorrhage [Unknown]
  - Expired product administered [Unknown]

NARRATIVE: CASE EVENT DATE: 201404
